FAERS Safety Report 9967569 (Version 1)
Quarter: 2014Q1

REPORT INFORMATION
  Report Type: Spontaneous
  Country: US (occurrence: US)
  Receive Date: 20140305
  Receipt Date: 20140305
  Transmission Date: 20141002
  Serious: No
  Sender: FDA-Public Use
  Company Number: US-ABBVIE-13P-163-1139254-00

PATIENT
  Age: 52 Year
  Sex: Male
  Weight: 82.17 kg

DRUGS (4)
  1. HUMIRA [Suspect]
     Indication: PSORIATIC ARTHROPATHY
     Route: 058
     Dates: start: 201306
  2. PERCOCET [Concomitant]
     Indication: PAIN
  3. PAXIL [Concomitant]
     Indication: ANXIETY
  4. METHOTREXATE [Concomitant]
     Indication: PSORIATIC ARTHROPATHY

REACTIONS (1)
  - Psoriatic arthropathy [Not Recovered/Not Resolved]
